FAERS Safety Report 8491001-5 (Version None)
Quarter: 2012Q2

REPORT INFORMATION
  Report Type: 
  Country: None (occurrence: None)
  Receive Date: 20120622
  Receipt Date: 20120607
  Transmission Date: 20120825
  Serious: Yes (Other)
  Sender: FDA-Public Use
  Company Number: 2250051-2012-00120

PATIENT
  Sex: Female

DRUGS (1)
  1. RHOGAM ULTRA-FILTERED PLUS [Suspect]
     Indication: ABORTION THREATENED
     Dosage: 300 UG
     Dates: start: 20120227

REACTIONS (3)
  - INFLUENZA LIKE ILLNESS [None]
  - PYREXIA [None]
  - FATIGUE [None]
